FAERS Safety Report 4283744-4 (Version None)
Quarter: 2004Q1

REPORT INFORMATION
  Report Type: 
  Country: None (occurrence: None)
  Receive Date: 20040115
  Receipt Date: 20030207
  Transmission Date: 20041129
  Serious: Yes (Other)
  Sender: FDA-Public Use
  Company Number: NSADSS2003006252

PATIENT
  Age: 62 Year
  Sex: Female
  Weight: 82.5547 kg

DRUGS (1)
  1. DOXIL [Suspect]
     Indication: OVARIAN CANCER
     Dosage: 70 MG, 1 IN 3 WEEK, INTRAVENOUS DRIP
     Route: 041
     Dates: start: 20020801, end: 20021209

REACTIONS (1)
  - CONDITION AGGRAVATED [None]
